FAERS Safety Report 10761065 (Version 1)
Quarter: 2015Q1

REPORT INFORMATION
  Report Type: Spontaneous
  Country: US (occurrence: None)
  Receive Date: 20150203
  Receipt Date: 20150203
  Transmission Date: 20150721
  Serious: Yes (Disabling)
  Sender: FDA-Public Use
  Company Number: None

PATIENT
  Age: 5 Year
  Sex: Male
  Weight: 21.77 kg

DRUGS (1)
  1. MONTELUKAST [Suspect]
     Active Substance: MONTELUKAST SODIUM
     Indication: ASTHMA
     Dosage: 1 CHEW PILL, ONCE DAILY, TAKEN BY MOUTH
     Route: 048

REACTIONS (4)
  - Tic [None]
  - Suicidal ideation [None]
  - Eye movement disorder [None]
  - Mydriasis [None]

NARRATIVE: CASE EVENT DATE: 20150119
